FAERS Safety Report 7785658-1 (Version None)
Quarter: 2011Q3

REPORT INFORMATION
  Report Type: 
  Country: None (occurrence: None)
  Receive Date: 20110929
  Receipt Date: 20110929
  Transmission Date: 20111222
  Serious: No
  Sender: FDA-Public Use
  Company Number: None

PATIENT
  Age: 52 Year
  Sex: Female
  Weight: 58.967 kg

DRUGS (1)
  1. TRAZODONE HYDROCHLORIDE [Suspect]
     Indication: DEPRESSION
     Dosage: 1 AND 1/2 TABS AT BEDTIME
     Route: 048

REACTIONS (2)
  - SEDATION [None]
  - PRODUCT SUBSTITUTION ISSUE [None]
